FAERS Safety Report 13257983 (Version 2)
Quarter: 2018Q2

REPORT INFORMATION
  Report Type: Spontaneous
  Country: SG (occurrence: SG)
  Receive Date: 20170221
  Receipt Date: 20180614
  Transmission Date: 20180711
  Serious: Yes (Life-Threatening, Hospitalization, Other)
  Sender: FDA-Public Use
  Company Number: SG-BAUSCH-BL-2017-004290

PATIENT
  Age: 68 Year
  Sex: Male

DRUGS (2)
  1. DEXAMETHASONE. [Suspect]
     Active Substance: DEXAMETHASONE
     Indication: SWELLING
  2. DEXAMETHASONE. [Suspect]
     Active Substance: DEXAMETHASONE
     Indication: INFLAMMATION
     Dosage: 4 MG IN 8 HOURS?SHORT INNOCUOUS COURSE
     Route: 048
     Dates: start: 20110916

REACTIONS (8)
  - Phaeochromocytoma crisis [Recovering/Resolving]
  - Respiratory failure [Recovering/Resolving]
  - Myocardial ischaemia [Recovering/Resolving]
  - Pneumonia [Recovering/Resolving]
  - Ischaemic hepatitis [Recovering/Resolving]
  - Rhabdomyolysis [Recovering/Resolving]
  - Acute kidney injury [Recovering/Resolving]
  - Retroperitoneal haematoma [Recovering/Resolving]

NARRATIVE: CASE EVENT DATE: 201109
